FAERS Safety Report 22976720 (Version 3)
Quarter: 2024Q2

REPORT INFORMATION
  Report Type: Spontaneous
  Country: US (occurrence: US)
  Receive Date: 20230925
  Receipt Date: 20240408
  Transmission Date: 20240716
  Serious: Yes (Other)
  Sender: FDA-Public Use
  Company Number: US-GLAXOSMITHKLINE-US2023127485

PATIENT

DRUGS (1)
  1. NUCALA [Suspect]
     Active Substance: MEPOLIZUMAB
     Indication: Asthma
     Dosage: 100 ML, Q4W

REACTIONS (2)
  - Foot operation [Unknown]
  - Impaired healing [Recovered/Resolved with Sequelae]

NARRATIVE: CASE EVENT DATE: 20230818
